FAERS Safety Report 5975755-5 (Version None)
Quarter: 2008Q4

REPORT INFORMATION
  Report Type: 
  Country: None (occurrence: None)
  Receive Date: 20081202
  Receipt Date: 20081126
  Transmission Date: 20090506
  Serious: Yes (Death, Other)
  Sender: FDA-Public Use
  Company Number: DE-MERCK-0810DEU00008

PATIENT
  Age: 66 Year
  Sex: Male

DRUGS (8)
  1. PRIMAXIN [Suspect]
     Indication: SEPSIS
     Route: 042
     Dates: start: 20080905, end: 20080911
  2. NOREPINEPHRINE HYDROCHLORIDE [Concomitant]
     Indication: SHOCK
     Route: 065
  3. PANTOZOL [Concomitant]
     Route: 065
  4. SUFENTANIL [Concomitant]
     Route: 065
  5. MIDAZOLAM [Concomitant]
     Route: 065
  6. PROPOFOL [Concomitant]
     Route: 065
  7. GRANOCYTE [Concomitant]
     Indication: NEUTROPENIA
     Route: 065
  8. FUROSEMIDE [Concomitant]
     Route: 065

REACTIONS (4)
  - EPILEPSY [None]
  - GASTROINTESTINAL CARCINOMA [None]
  - MULTIPLE MYELOMA [None]
  - OVERDOSE [None]
